FAERS Safety Report 6134979-7 (Version None)
Quarter: 2009Q1

REPORT INFORMATION
  Report Type: 
  Country: None (occurrence: None)
  Receive Date: 20090327
  Receipt Date: 20090317
  Transmission Date: 20090719
  Serious: Yes (Hospitalization)
  Sender: FDA-Public Use
  Company Number: KP-WATSON-2009-01769

PATIENT
  Age: 49 Year
  Sex: Female

DRUGS (1)
  1. DISULFIRAM (WATSON LABORATORIES) [Suspect]
     Indication: SUICIDE ATTEMPT
     Dosage: 32.5 G, SINGLE (130 TABLETS X 250MG/ TABLET)
     Route: 048

REACTIONS (5)
  - PERIPHERAL SENSORIMOTOR NEUROPATHY [None]
  - QUADRIPARESIS [None]
  - SELF-MEDICATION [None]
  - SUICIDE ATTEMPT [None]
  - VOCAL CORD PARALYSIS [None]
